FAERS Safety Report 8419213-7 (Version None)
Quarter: 2012Q2

REPORT INFORMATION
  Report Type: 
  Country: None (occurrence: None)
  Receive Date: 20120607
  Receipt Date: 20120606
  Transmission Date: 20120825
  Serious: Yes (Death)
  Sender: FDA-Public Use
  Company Number: CA-ABBOTT-12P-028-0938299-00

PATIENT
  Sex: Male
  Weight: 129.39 kg

DRUGS (1)
  1. LUPRON DEPOT [Suspect]
     Indication: PROSTATE CANCER
     Route: 030
     Dates: start: 20090101

REACTIONS (4)
  - SEPSIS [None]
  - MALAISE [None]
  - PYELONEPHRITIS [None]
  - PROSTATE CANCER [None]
